FAERS Safety Report 7989693-X (Version None)
Quarter: 2011Q4

REPORT INFORMATION
  Report Type: 
  Country: None (occurrence: None)
  Receive Date: 20111219
  Receipt Date: 20111205
  Transmission Date: 20120403
  Serious: Yes (Hospitalization)
  Sender: FDA-Public Use
  Company Number: US-ELI_LILLY_AND_COMPANY-US201008000413

PATIENT
  Sex: Female

DRUGS (21)
  1. NEXIUM [Concomitant]
  2. VITAMIN D [Concomitant]
  3. LEVOTHYROXINE SODIUM [Concomitant]
  4. LUNESTA [Concomitant]
  5. PREMPRO [Concomitant]
  6. MILNACIPRAN [Concomitant]
  7. TRAZODONE HCL [Concomitant]
  8. FORTEO [Suspect]
     Indication: OSTEOPOROSIS
     Dosage: 20 UG, QD
     Route: 065
  9. PERCOCET [Concomitant]
  10. FLONASE [Concomitant]
  11. BUMEX [Concomitant]
     Indication: FLUID RETENTION
  12. VOLTAREN [Concomitant]
     Dosage: UNK, OTHER
  13. MIRALAX [Concomitant]
     Indication: FAECES HARD
  14. VITAMIN B-12 [Concomitant]
  15. CELEBREX [Concomitant]
  16. MULTI-VITAMIN [Concomitant]
  17. VITAMIN B12                        /00056201/ [Concomitant]
  18. FORTEO [Suspect]
     Dosage: 20 UG, QD
     Route: 065
  19. POTASSIUM CHLORIDE [Concomitant]
  20. SENOKOT [Concomitant]
  21. CALTRATE                           /00944201/ [Concomitant]

REACTIONS (3)
  - BACK PAIN [None]
  - BONE PAIN [None]
  - RHINORRHOEA [None]
